FAERS Safety Report 4284470-8 (Version None)
Quarter: 2004Q1

REPORT INFORMATION
  Report Type: 
  Country: None (occurrence: None)
  Receive Date: 20040130
  Receipt Date: 20040127
  Transmission Date: 20041129
  Serious: Yes (Death, Hospitalization)
  Sender: FDA-Public Use
  Company Number: 200410306GDS

PATIENT
  Age: 27 Year
  Sex: Female

DRUGS (2)
  1. CIPROFLOXACIN [Suspect]
     Indication: DENTAL TREATMENT
     Dosage: 500 MG, BID
  2. HYDROXYCHLOROQUINE [Concomitant]

REACTIONS (13)
  - ACUTE RESPIRATORY DISTRESS SYNDROME [None]
  - ANAEMIA [None]
  - CARDIAC ARREST [None]
  - DISEASE RECURRENCE [None]
  - DISSEMINATED INTRAVASCULAR COAGULATION [None]
  - HEART RATE INCREASED [None]
  - MULTI-ORGAN FAILURE [None]
  - PERIODONTAL INFECTION [None]
  - PULMONARY OEDEMA [None]
  - RENAL FAILURE [None]
  - RIGHT VENTRICULAR FAILURE [None]
  - SHOCK [None]
  - TOXIC EPIDERMAL NECROLYSIS [None]
